FAERS Safety Report 6166835-2 (Version None)
Quarter: 2009Q2

REPORT INFORMATION
  Report Type: 
  Country: None (occurrence: None)
  Receive Date: 20090423
  Receipt Date: 20090423
  Transmission Date: 20091009
  Serious: Yes (Other)
  Sender: FDA-Public Use
  Company Number: None

PATIENT
  Age: 45 Year
  Sex: Male
  Weight: 86.1834 kg

DRUGS (1)
  1. SIMVASTATIN [Suspect]
     Indication: BLOOD CHOLESTEROL INCREASED
     Dosage: 1 TABLET NIGHTLY PO
     Route: 048
     Dates: start: 20090331, end: 20090420

REACTIONS (5)
  - COUGH [None]
  - DYSPEPSIA [None]
  - FATIGUE [None]
  - PHARYNGEAL OEDEMA [None]
  - SKIN LESION [None]
